FAERS Safety Report 6349516-1 (Version None)
Quarter: 2009Q3

REPORT INFORMATION
  Report Type: 
  Country: None (occurrence: None)
  Receive Date: 20090911
  Receipt Date: 20090901
  Transmission Date: 20100115
  Serious: Yes (Disabling, Other)
  Sender: FDA-Public Use
  Company Number: US-PFIZER INC-2009263793

PATIENT
  Age: 59 Year
  Sex: Female
  Weight: 84 kg

DRUGS (6)
  1. DIFLUCAN [Suspect]
     Indication: FUNGAL INFECTION
  2. LUNESTA [Concomitant]
  3. IBUPROFEN [Concomitant]
  4. MELOXICAM [Concomitant]
  5. LYRICA [Concomitant]
  6. CELEBREX [Concomitant]

REACTIONS (1)
  - DISABILITY [None]
